FAERS Safety Report 9454292 (Version 1)
Quarter: 2013Q3

REPORT INFORMATION
  Report Type: Spontaneous
  Country: US (occurrence: None)
  Receive Date: 20130809
  Receipt Date: 20130809
  Transmission Date: 20140515
  Serious: Yes (Hospitalization)
  Sender: FDA-Public Use
  Company Number: None

PATIENT
  Age: 61 Year
  Sex: Male
  Weight: 89.8 kg

DRUGS (5)
  1. XARELTO [Suspect]
     Indication: ATRIAL FIBRILLATION
     Dosage: 1 PILL QD ORAL
     Route: 048
  2. LEVOTHYROXINE (SYNTHROID) [Concomitant]
  3. GLIMEPIRIDE [Concomitant]
  4. AMLODIPINE [Concomitant]
  5. CYCLOBENZAPRINE (FLEXERIL) [Concomitant]

REACTIONS (4)
  - Oedema peripheral [None]
  - Contusion [None]
  - Pulse absent [None]
  - Blister [None]
